FAERS Safety Report 22625473 (Version 1)
Quarter: 2023Q2

REPORT INFORMATION
  Report Type: Spontaneous
  Country: IT (occurrence: None)
  Receive Date: 20230621
  Receipt Date: 20230621
  Transmission Date: 20230722
  Serious: Yes (Other)
  Sender: FDA-Public Use
  Company Number: None

PATIENT
  Age: 74 Year
  Sex: Female

DRUGS (4)
  1. CLARITHROMYCIN LACTOBIONATE [Suspect]
     Active Substance: CLARITHROMYCIN LACTOBIONATE
     Indication: Infection
     Route: 042
     Dates: start: 20230514
  2. PIPERACILLIN AND TAZOBACTAM [Suspect]
     Active Substance: PIPERACILLIN SODIUM\TAZOBACTAM SODIUM
     Indication: Infection
     Route: 042
     Dates: start: 20230514
  3. ASPIRIN DL-LYSINE [Concomitant]
     Active Substance: ASPIRIN DL-LYSINE
     Indication: Prophylaxis
     Route: 042
     Dates: start: 20230514
  4. LASIX [Concomitant]
     Active Substance: FUROSEMIDE
     Indication: Hypertension
     Route: 042
     Dates: start: 20230514

REACTIONS (3)
  - Anaemia [Recovering/Resolving]
  - Blood creatinine increased [Recovering/Resolving]
  - Aspartate aminotransferase increased [Recovered/Resolved]

NARRATIVE: CASE EVENT DATE: 20230516
